FAERS Safety Report 13241748 (Version 1)
Quarter: 2017Q1

REPORT INFORMATION
  Report Type: Spontaneous
  Country: US (occurrence: US)
  Receive Date: 20170216
  Receipt Date: 20170216
  Transmission Date: 20170428
  Serious: No
  Sender: FDA-Public Use
  Company Number: US-RELYPSA-RLY2016004565

PATIENT
  Sex: Male

DRUGS (11)
  1. ESTER-C [Concomitant]
     Active Substance: CALCIUM\VITAMINS
  2. CINNAMON. [Concomitant]
     Active Substance: CINNAMON
  3. FENOFIBRATE. [Concomitant]
     Active Substance: FENOFIBRATE
  4. LANTUS [Concomitant]
     Active Substance: INSULIN GLARGINE
  5. VELTASSA [Suspect]
     Active Substance: PATIROMER
     Indication: HYPERKALAEMIA
     Dosage: 8.4 G, QD
     Route: 048
     Dates: start: 20161026
  6. ASTAXANTHIN [Concomitant]
  7. ALIVE [Concomitant]
  8. ANDROGEL [Concomitant]
     Active Substance: TESTOSTERONE
  9. GINGER. [Concomitant]
     Active Substance: GINGER
  10. VITAMIN D3 [Concomitant]
     Active Substance: CHOLECALCIFEROL
  11. NOVOLOG [Concomitant]
     Active Substance: INSULIN ASPART

REACTIONS (2)
  - Dry throat [Unknown]
  - Oropharyngeal pain [Unknown]

NARRATIVE: CASE EVENT DATE: 2016
